FAERS Safety Report 16984445 (Version 1)
Quarter: 2019Q4

REPORT INFORMATION
  Report Type: Spontaneous
  Country: US (occurrence: US)
  Receive Date: 20191101
  Receipt Date: 20191101
  Transmission Date: 20200122
  Serious: No
  Sender: FDA-Public Use
  Company Number: US-FARMAPROD-201909-1393

PATIENT
  Sex: Female

DRUGS (3)
  1. OXERVATE [Suspect]
     Active Substance: CENEGERMIN-BKBJ
     Indication: NEUROTROPHIC KERATOPATHY
     Route: 047
  2. LACRILUBE [Concomitant]
     Indication: DRY EYE
     Dosage: ONCE EVERY NIGHT
     Route: 061
  3. SYSTANE (HYPROMELLOSE 2910 (4000 MPA.S)) [Concomitant]
     Active Substance: HYPROMELLOSE 2910 (4000 MPA.S)
     Indication: DRY EYE
     Route: 061

REACTIONS (2)
  - Ocular hyperaemia [Recovered/Resolved]
  - Capillary fragility [Recovered/Resolved]

NARRATIVE: CASE EVENT DATE: 20190904
